FAERS Safety Report 5913956-2 (Version None)
Quarter: 2008Q4

REPORT INFORMATION
  Report Type: 
  Country: None (occurrence: None)
  Receive Date: 20081009
  Receipt Date: 20081002
  Transmission Date: 20090506
  Serious: Yes (Hospitalization)
  Sender: FDA-Public Use
  Company Number: DE-MERCK-0809DEU00097

PATIENT
  Age: 77 Year
  Sex: Female
  Weight: 50 kg

DRUGS (8)
  1. VYTORIN [Suspect]
     Indication: MYOCARDIAL INFARCTION
     Route: 048
     Dates: start: 20080801, end: 20080819
  2. BISOPROLOL FUMARATE [Concomitant]
     Indication: MYOCARDIAL INFARCTION
     Route: 048
     Dates: start: 20080801
  3. BISOPROLOL FUMARATE [Concomitant]
     Indication: HYPERTENSION
     Route: 048
     Dates: start: 20080801
  4. HYDROCHLOROTHIAZIDE AND RAMIPRIL [Concomitant]
     Indication: MYOCARDIAL INFARCTION
     Route: 048
     Dates: start: 20080801
  5. HYDROCHLOROTHIAZIDE AND RAMIPRIL [Concomitant]
     Indication: HYPERTENSION
     Route: 048
     Dates: start: 20080801
  6. ALLOPURINOL [Concomitant]
     Indication: GOUT
     Route: 048
     Dates: start: 20080801, end: 20080819
  7. ASPIRIN [Concomitant]
     Indication: MYOCARDIAL INFARCTION
     Route: 048
     Dates: start: 20080801
  8. CLOPIDOGREL BISULFATE [Concomitant]
     Indication: MYOCARDIAL INFARCTION
     Route: 048
     Dates: start: 20080801

REACTIONS (12)
  - ANAEMIA [None]
  - BLOOD BILIRUBIN INCREASED [None]
  - CIRCULATORY COLLAPSE [None]
  - DERMATITIS ALLERGIC [None]
  - FOLATE DEFICIENCY [None]
  - GAMMA-GLUTAMYLTRANSFERASE INCREASED [None]
  - GASTRITIS [None]
  - GENERAL PHYSICAL HEALTH DETERIORATION [None]
  - LIVER FUNCTION TEST ABNORMAL [None]
  - NAUSEA [None]
  - PYREXIA [None]
  - VOMITING [None]
